FAERS Safety Report 14747298 (Version 1)
Quarter: 2018Q2

REPORT INFORMATION
  Report Type: Spontaneous
  Country: BR (occurrence: BR)
  Receive Date: 20180411
  Receipt Date: 20180411
  Transmission Date: 20180711
  Serious: Yes (Other)
  Sender: FDA-Public Use
  Company Number: BR-DSJP-DSU-2018-113679

PATIENT

DRUGS (1)
  1. OLMETEC ANLO 40/10 [Suspect]
     Active Substance: AMLODIPINE BESYLATE\OLMESARTAN MEDOXOMIL
     Indication: BLOOD PRESSURE ABNORMAL
     Dosage: 1 DF, QD (40/10 MG, DAILY IN BREAKFAST)
     Route: 065
     Dates: start: 2011

REACTIONS (4)
  - Cerebrovascular accident [Not Recovered/Not Resolved]
  - Monoplegia [Not Recovered/Not Resolved]
  - Gait inability [Not Recovered/Not Resolved]
  - Speech disorder [Not Recovered/Not Resolved]

NARRATIVE: CASE EVENT DATE: 2016
